FAERS Safety Report 5279308-6 (Version None)
Quarter: 2007Q1

REPORT INFORMATION
  Report Type: 
  Country: None (occurrence: None)
  Receive Date: 20070328
  Receipt Date: 20060508
  Transmission Date: 20070707
  Serious: No
  Sender: FDA-Public Use
  Company Number: US-AMGEN-US171108

PATIENT
  Sex: Female

DRUGS (2)
  1. NEULASTA [Suspect]
     Indication: CHEMOTHERAPY
     Route: 058
     Dates: start: 20060104, end: 20060202
  2. PREVACID [Concomitant]
     Route: 048

REACTIONS (2)
  - PERIORBITAL OEDEMA [None]
  - SINUSITIS [None]
